FAERS Safety Report 10305412 (Version 1)
Quarter: 2014Q3

REPORT INFORMATION
  Report Type: Spontaneous
  Country: US (occurrence: None)
  Receive Date: 20140711
  Receipt Date: 20140711
  Transmission Date: 20150326
  Serious: Yes (Hospitalization)
  Sender: FDA-Public Use
  Company Number: None

PATIENT
  Age: 42 Year
  Sex: Female
  Weight: 81.65 kg

DRUGS (13)
  1. PROMETHAZINE [Suspect]
     Active Substance: PROMETHAZINE\PROMETHAZINE HYDROCHLORIDE
     Indication: NAUSEA
     Dosage: 1  AS NEEDED  TAKEN BY MOUTH
     Route: 048
     Dates: start: 20140509, end: 20140709
  2. TORSEMIDE. [Concomitant]
     Active Substance: TORSEMIDE
  3. COQ10 [Concomitant]
     Active Substance: UBIDECARENONE
  4. ASPIRIN. [Concomitant]
     Active Substance: ASPIRIN
  5. PACEMAKER [Concomitant]
  6. PROTONIX [Concomitant]
     Active Substance: PANTOPRAZOLE SODIUM
  7. CULTURELLE PROBIOTIC [Concomitant]
  8. WELLBUTRIN [Concomitant]
     Active Substance: BUPROPION HYDROCHLORIDE
  9. SYNTHROID [Concomitant]
     Active Substance: LEVOTHYROXINE SODIUM
  10. HYDROCODONE [Concomitant]
     Active Substance: HYDROCODONE
  11. MULTIVITAMIN [Concomitant]
     Active Substance: VITAMINS
  12. COUMADIN [Concomitant]
     Active Substance: WARFARIN SODIUM
  13. METOPROLOL [Concomitant]
     Active Substance: METOPROLOL

REACTIONS (6)
  - Grip strength decreased [None]
  - Muscular weakness [None]
  - Dyspnoea [None]
  - Paraesthesia [None]
  - Dysstasia [None]
  - Feeling cold [None]

NARRATIVE: CASE EVENT DATE: 20140628
